APPROVED DRUG PRODUCT: ZOVIRAX
Active Ingredient: ACYCLOVIR SODIUM
Strength: EQ 250MG BASE/VIAL **Federal Register determination that product was not discontinued or withdrawn for safety or effectiveness reasons**
Dosage Form/Route: INJECTABLE;INJECTION
Application: N018603 | Product #003
Applicant: GLAXOSMITHKLINE
Approved: Aug 30, 1983 | RLD: Yes | RS: No | Type: DISCN